FAERS Safety Report 16850240 (Version 1)
Quarter: 2019Q4

REPORT INFORMATION
  Report Type: Spontaneous
  Country: US (occurrence: US)
  Receive Date: 20190906
  Receipt Date: 20190906
  Transmission Date: 20200122
  Serious: Yes (Death)
  Sender: FDA-Public Use
  Company Number: None

PATIENT
  Age: 77 Year
  Sex: Female

DRUGS (16)
  1. CEFUROXIME. [Concomitant]
     Active Substance: CEFUROXIME
  2. ADVAIR HFA [Concomitant]
     Active Substance: FLUTICASONE PROPIONATE\SALMETEROL XINAFOATE
  3. LEVEMIR [Concomitant]
     Active Substance: INSULIN DETEMIR
  4. METALOZONE [Concomitant]
  5. HYPERSAL [Suspect]
     Active Substance: SODIUM CHLORIDE
     Indication: PRODUCT USED FOR UNKNOWN INDICATION
     Route: 055
     Dates: start: 20180801, end: 20190827
  6. ITRACONAZOLE. [Concomitant]
     Active Substance: ITRACONAZOLE
  7. PREDNISONE. [Concomitant]
     Active Substance: PREDNISONE
  8. OND AN SETRON [Concomitant]
  9. HYDROMORPHONE [Concomitant]
     Active Substance: HYDROMORPHONE
  10. AL BUTEROL [Concomitant]
  11. FLUCONAZOLE. [Concomitant]
     Active Substance: FLUCONAZOLE
  12. ACTONEL [Concomitant]
     Active Substance: RISEDRONATE SODIUM
  13. AZILHROMYCIN [Concomitant]
  14. BENZONATATE. [Concomitant]
     Active Substance: BENZONATATE
  15. BUMETANIDE. [Concomitant]
     Active Substance: BUMETANIDE
  16. NOVOLOG [Concomitant]
     Active Substance: INSULIN ASPART

REACTIONS (1)
  - Death [None]

NARRATIVE: CASE EVENT DATE: 20190827
